FAERS Safety Report 6877131-X (Version None)
Quarter: 2010Q3

REPORT INFORMATION
  Report Type: 
  Country: None (occurrence: None)
  Receive Date: 20100727
  Receipt Date: 20100727
  Transmission Date: 20110219
  Serious: Yes (Other)
  Sender: FDA-Public Use
  Company Number: None

PATIENT
  Sex: Female
  Weight: 94.3482 kg

DRUGS (9)
  1. OXALIPLATIN [Suspect]
     Indication: COLON CANCER
     Dosage: 162 MG Q 2 WEEKS IV DRIP
     Route: 041
     Dates: start: 20100414, end: 20100721
  2. FOLFOX [Concomitant]
  3. ONDANSETRON 32 MG [Concomitant]
  4. DEXAMETHASONE [Concomitant]
  5. CALCIUM GLUCONATE [Concomitant]
  6. MAGNESIUM SULFATE [Concomitant]
  7. OXALIPLATIN [Concomitant]
  8. LEUCOVORIN CALCIUM [Concomitant]
  9. FLUOROURACIL [Concomitant]

REACTIONS (1)
  - URTICARIA [None]
